FAERS Safety Report 16682158 (Version 2)
Quarter: 2019Q3

REPORT INFORMATION
  Report Type: Spontaneous
  Country: US (occurrence: US)
  Receive Date: 20190808
  Receipt Date: 20190905
  Transmission Date: 20191004
  Serious: Yes (Other)
  Sender: FDA-Public Use
  Company Number: US-ASTRAZENECA-2019SF11872

PATIENT
  Sex: Male
  Weight: 103.9 kg

DRUGS (3)
  1. BYDUREON BCISE [Suspect]
     Active Substance: EXENATIDE
     Indication: TYPE 2 DIABETES MELLITUS
     Route: 058
  2. TOUJEO [Concomitant]
     Active Substance: INSULIN GLARGINE
     Indication: TYPE 2 DIABETES MELLITUS
  3. TESTOSTERONE. [Concomitant]
     Active Substance: TESTOSTERONE

REACTIONS (6)
  - Incorrect dose administered by device [Unknown]
  - Large intestinal obstruction [Not Recovered/Not Resolved]
  - Wrong technique in device usage process [Recovered/Resolved]
  - Diarrhoea [Not Recovered/Not Resolved]
  - Device leakage [Unknown]
  - Blood glucose increased [Unknown]
